FAERS Safety Report 5978693-7 (Version None)
Quarter: 2008Q4

REPORT INFORMATION
  Report Type: 
  Country: None (occurrence: None)
  Receive Date: 20081204
  Receipt Date: 20081124
  Transmission Date: 20090506
  Serious: Yes (Hospitalization, Other)
  Sender: FDA-Public Use
  Company Number: US-AMGEN-STX277644

PATIENT
  Sex: Female

DRUGS (1)
  1. ENBREL [Suspect]
     Indication: RHEUMATOID ARTHRITIS
     Route: 058
     Dates: start: 20010101, end: 20080513

REACTIONS (16)
  - CLOSTRIDIUM DIFFICILE COLITIS [None]
  - COLONIC POLYP [None]
  - CONJUNCTIVAL ULCER [None]
  - DIVERTICULITIS [None]
  - GOUT [None]
  - HAEMATEMESIS [None]
  - OCULAR HYPERAEMIA [None]
  - OEDEMA PERIPHERAL [None]
  - PRURITUS [None]
  - PURPURA [None]
  - RECTAL HAEMORRHAGE [None]
  - RENAL FAILURE [None]
  - SKIN ULCER [None]
  - TENDON RUPTURE [None]
  - VASCULITIS [None]
  - VOMITING [None]
